FAERS Safety Report 22309064 (Version 6)
Quarter: 2025Q2

REPORT INFORMATION
  Report Type: Spontaneous
  Country: US (occurrence: US)
  Receive Date: 20230511
  Receipt Date: 20250509
  Transmission Date: 20250716
  Serious: Yes (Hospitalization)
  Sender: VERTEX
  Company Number: US-VERTEX PHARMACEUTICALS-2023-006573

PATIENT
  Age: 19 Year
  Sex: Female

DRUGS (1)
  1. TRIKAFTA [Suspect]
     Active Substance: ELEXACAFTOR\IVACAFTOR\TEZACAFTOR
     Indication: Cystic fibrosis
     Route: 048

REACTIONS (6)
  - Bedridden [Unknown]
  - Post-traumatic stress disorder [Not Recovered/Not Resolved]
  - Weight decreased [Recovered/Resolved]
  - Pulmonary function test decreased [Recovered/Resolved]
  - Infective pulmonary exacerbation of cystic fibrosis [Unknown]
  - Cough [Unknown]

NARRATIVE: CASE EVENT DATE: 20240101
